FAERS Safety Report 10045336 (Version 1)
Quarter: 2014Q1

REPORT INFORMATION
  Report Type: Spontaneous
  Country: GB (occurrence: GB)
  Receive Date: 20140328
  Receipt Date: 20140328
  Transmission Date: 20141002
  Serious: Yes (Hospitalization, Other)
  Sender: FDA-Public Use
  Company Number: GB-JNJFOC-20140309770

PATIENT
  Age: 34 Year
  Sex: Female
  Weight: 99.8 kg

DRUGS (9)
  1. NORETHISTERONE [Suspect]
     Indication: IMMUNE THROMBOCYTOPENIC PURPURA
     Route: 048
     Dates: start: 20100922, end: 20100928
  2. DEXAMETHASONE [Suspect]
     Indication: ANTIEMETIC SUPPORTIVE CARE
     Route: 048
     Dates: start: 20100907, end: 20100910
  3. TRANEXAMIC ACID [Suspect]
     Indication: IMMUNE THROMBOCYTOPENIC PURPURA
     Dosage: CUMULATIVE DOSE 4.0
     Route: 048
     Dates: start: 20100922, end: 20100928
  4. HUMAN NORMAL IMMUNOGLOBULIN [Suspect]
     Indication: IMMUNE THROMBOCYTOPENIC PURPURA
     Route: 042
     Dates: start: 20100922, end: 20100923
  5. RITUXIMAB [Suspect]
     Indication: IMMUNE THROMBOCYTOPENIC PURPURA
     Route: 041
     Dates: start: 20100917, end: 20100924
  6. ROMIPLOSTIM [Suspect]
     Indication: IMMUNE THROMBOCYTOPENIC PURPURA
     Route: 058
     Dates: start: 20100920, end: 20100920
  7. LANSOPRAZOLE [Suspect]
     Indication: GASTROOESOPHAGEAL REFLUX PROPHYLAXIS
     Dosage: CUMULATIVE DOSE 450
     Route: 048
     Dates: start: 20100907, end: 20100928
  8. ANTI-D IMMUNOGLOBULIN [Concomitant]
     Route: 065
  9. VINCRISTINE [Concomitant]
     Route: 065

REACTIONS (11)
  - Purpura [Recovered/Resolved]
  - Rash erythematous [Recovered/Resolved]
  - Melaena [Unknown]
  - Haemorrhage [Unknown]
  - Vaginal haemorrhage [Unknown]
  - Rectal haemorrhage [Unknown]
  - Haemoglobin decreased [Unknown]
  - Rash maculo-papular [Recovered/Resolved]
  - Arthralgia [Unknown]
  - Off label use [Unknown]
  - Incorrect dose administered [Unknown]
